FAERS Safety Report 8229696-3 (Version None)
Quarter: 2012Q1

REPORT INFORMATION
  Report Type: 
  Country: None (occurrence: None)
  Receive Date: 20120322
  Receipt Date: 20120313
  Transmission Date: 20120608
  Serious: Yes (Other)
  Sender: FDA-Public Use
  Company Number: US-ASTRAZENECA-2010SE08886

PATIENT
  Age: 82 Year
  Sex: Female
  Weight: 81.2 kg

DRUGS (11)
  1. OMEPRAZOLE [Concomitant]
     Route: 048
  2. CAPTOPRIL [Concomitant]
  3. LASIX [Concomitant]
  4. LOVASTATIN [Concomitant]
  5. LOSARTAN POTASSIUM [Concomitant]
  6. GLYBURIDE [Concomitant]
  7. LEVOTHYROXINE SODIUM [Concomitant]
  8. SYMBICORT [Suspect]
     Indication: CHRONIC OBSTRUCTIVE PULMONARY DISEASE
     Dosage: 160/4.5 DAILY
     Route: 055
     Dates: start: 20081108
  9. SYMBICORT [Suspect]
     Dosage: 640MCG, 2 PUFFS BID
     Route: 055
     Dates: start: 20090601
  10. SYMBICORT [Suspect]
     Indication: ASTHMA
     Dosage: 160/4.5 DAILY
     Route: 055
     Dates: start: 20081108
  11. SYMBICORT [Suspect]
     Dosage: 640MCG, 2 PUFFS BID
     Route: 055
     Dates: start: 20090601

REACTIONS (10)
  - DYSGEUSIA [None]
  - DYSPNOEA [None]
  - ANIMAL SCRATCH [None]
  - WOUND COMPLICATION [None]
  - INFECTION [None]
  - HAEMORRHAGE [None]
  - ULCER [None]
  - MUSCLE RUPTURE [None]
  - PAIN [None]
  - CELLULITIS [None]
